FAERS Safety Report 8390347-9 (Version None)
Quarter: 2012Q2

REPORT INFORMATION
  Report Type: 
  Country: None (occurrence: None)
  Receive Date: 20120515
  Receipt Date: 20120503
  Transmission Date: 20120825
  Serious: Yes (Hospitalization)
  Sender: FDA-Public Use
  Company Number: 2012SP024034

PATIENT
  Age: 55 Year
  Sex: Male

DRUGS (5)
  1. NASONEX [Suspect]
     Indication: SLEEP APNOEA SYNDROME
     Dosage: 1 DF;BID;NAS
     Route: 045
     Dates: start: 20070101
  2. SALSALATE [Concomitant]
  3. PANTOPRAZOLE [Concomitant]
  4. NIASPAN [Concomitant]
  5. TRIAMTERENE AND HYDROCHLOROTHIAZIDE [Concomitant]

REACTIONS (2)
  - GUILLAIN-BARRE SYNDROME [None]
  - OFF LABEL USE [None]
